FAERS Safety Report 12081650 (Version 5)
Quarter: 2016Q2

REPORT INFORMATION
  Report Type: Report from Study
  Country: US (occurrence: US)
  Receive Date: 20160216
  Receipt Date: 20160425
  Transmission Date: 20160815
  Serious: Yes (Hospitalization, Other)
  Sender: FDA-Public Use
  Company Number: US-GILEAD-2016-0198723

PATIENT
  Age: 67 Year
  Sex: Female

DRUGS (5)
  1. SILDENAFIL. [Concomitant]
     Active Substance: SILDENAFIL
  2. REMODULIN [Concomitant]
     Active Substance: TREPROSTINIL
  3. AMBRISENTAN [Suspect]
     Active Substance: AMBRISENTAN
     Indication: PULMONARY ARTERIAL HYPERTENSION
     Dosage: 10 MG, QD
     Route: 065
     Dates: start: 20130924
  4. REVATIO [Concomitant]
     Active Substance: SILDENAFIL CITRATE
  5. TREPROSTINIL [Concomitant]
     Active Substance: TREPROSTINIL

REACTIONS (3)
  - Right ventricular failure [Recovered/Resolved]
  - Hypotension [Unknown]
  - Fluid retention [Recovered/Resolved]
